FAERS Safety Report 8673849 (Version 2)
Quarter: 2013Q2

REPORT INFORMATION
  Report Type: Spontaneous
  Country: IT (occurrence: IT)
  Receive Date: 20120719
  Receipt Date: 20130515
  Transmission Date: 20140414
  Serious: Yes (Hospitalization)
  Sender: FDA-Public Use
  Company Number: IT-SANOFI-AVENTIS-2012SA049962

PATIENT
  Age: 52 Year
  Sex: Female

DRUGS (5)
  1. TAXOTERE [Suspect]
     Indication: BREAST CANCER
     Route: 042
     Dates: start: 20120606, end: 20120606
  2. TINSET [Concomitant]
     Indication: PREMEDICATION
     Route: 065
  3. DELTACORTENE [Concomitant]
     Indication: PREMEDICATION
     Route: 065
  4. EPIRUBICIN [Concomitant]
     Route: 065
  5. ENDOXAN [Concomitant]
     Indication: BREAST CANCER
     Route: 065

REACTIONS (3)
  - Laryngospasm [Recovered/Resolved]
  - Dyspnoea [Recovered/Resolved]
  - Tremor [Recovered/Resolved]
